FAERS Safety Report 16358260 (Version 1)
Quarter: 2019Q2

REPORT INFORMATION
  Report Type: Spontaneous
  Country: US (occurrence: US)
  Receive Date: 20190527
  Receipt Date: 20190527
  Transmission Date: 20190711
  Serious: Yes (Hospitalization)
  Sender: FDA-Public Use
  Company Number: US-IMPAX LABORATORIES, LLC-2019-IPXL-01039

PATIENT
  Age: 17 Year
  Sex: Female

DRUGS (1)
  1. CYPROHEPTADINE HYDROCHLORIDE. [Suspect]
     Active Substance: CYPROHEPTADINE HYDROCHLORIDE
     Indication: PRODUCT USED FOR UNKNOWN INDICATION
     Dosage: UNK
     Route: 065

REACTIONS (4)
  - Toxicity to various agents [Recovered/Resolved]
  - Delirium [Recovered/Resolved]
  - Mydriasis [Recovered/Resolved]
  - Sinus tachycardia [Recovered/Resolved]
